FAERS Safety Report 7913521-1 (Version None)
Quarter: 2011Q4

REPORT INFORMATION
  Report Type: 
  Country: None (occurrence: None)
  Receive Date: 20111110
  Receipt Date: 20111026
  Transmission Date: 20120403
  Serious: Yes (Hospitalization, Other)
  Sender: FDA-Public Use
  Company Number: 2011SP050988

PATIENT
  Sex: Male

DRUGS (3)
  1. PEG-INTRON [Suspect]
     Indication: HEPATITIS C
     Dates: start: 20110624, end: 20111010
  2. RIBAVIRIN [Suspect]
     Indication: HEPATITIS C
     Dates: start: 20110624, end: 20111010
  3. VICTRELIS [Suspect]
     Indication: HEPATITIS C
     Dates: start: 20110717, end: 20111010

REACTIONS (4)
  - ANAEMIA [None]
  - NEUTROPENIA [None]
  - PULMONARY EMBOLISM [None]
  - LEUKOPENIA [None]
